FAERS Safety Report 21462911 (Version 1)
Quarter: 2022Q4

REPORT INFORMATION
  Report Type: Spontaneous
  Country: US (occurrence: US)
  Receive Date: 20221017
  Receipt Date: 20221017
  Transmission Date: 20230113
  Serious: No
  Sender: FDA-Public Use
  Company Number: US-NOVARTISTESTPH-NVSC2022US232601

PATIENT

DRUGS (1)
  1. VOLTAREN [Suspect]
     Active Substance: DICLOFENAC SODIUM
     Indication: Arthralgia
     Dosage: UNK (4 TIMES A DAY, FOR 21 DAYS)
     Route: 065
     Dates: start: 20221002

REACTIONS (1)
  - Therapeutic product effect variable [Unknown]

NARRATIVE: CASE EVENT DATE: 20221001
